FAERS Safety Report 11761218 (Version 1)
Quarter: 2015Q4

REPORT INFORMATION
  Report Type: Spontaneous
  Country: US (occurrence: US)
  Receive Date: 20151120
  Receipt Date: 20151120
  Transmission Date: 20160304
  Serious: No
  Sender: FDA-Public Use
  Company Number: CHPA2015US013863

PATIENT
  Age: 76 Year
  Sex: Female

DRUGS (3)
  1. VOLTAREN [Suspect]
     Active Substance: DICLOFENAC SODIUM
     Indication: ARTHRITIS
     Dosage: 2 G, TID
     Route: 061
     Dates: start: 20150721, end: 20150723
  2. VOLTAREN [Suspect]
     Active Substance: DICLOFENAC SODIUM
     Dosage: 2 G, QD
     Route: 061
     Dates: start: 20150725, end: 20150725
  3. VOLTAREN [Suspect]
     Active Substance: DICLOFENAC SODIUM
     Dosage: 2 G, BID
     Route: 061
     Dates: start: 20150724, end: 20150724

REACTIONS (7)
  - Inappropriate schedule of drug administration [Unknown]
  - Hypersensitivity [Recovering/Resolving]
  - Discomfort [Recovering/Resolving]
  - Incorrect dose administered [Unknown]
  - Bone pain [Recovering/Resolving]
  - Pain [Recovering/Resolving]
  - Arthralgia [Recovering/Resolving]

NARRATIVE: CASE EVENT DATE: 2015
